FAERS Safety Report 23597956 (Version 1)
Quarter: 2024Q1

REPORT INFORMATION
  Report Type: Spontaneous
  Country: PT (occurrence: PT)
  Receive Date: 20240305
  Receipt Date: 20240305
  Transmission Date: 20240410
  Serious: Yes (Other)
  Sender: FDA-Public Use
  Company Number: PT-BAUSCHBL-2024BNL002538

PATIENT
  Age: 72 Year
  Sex: Female

DRUGS (1)
  1. GANCICLOVIR [Suspect]
     Active Substance: GANCICLOVIR
     Indication: Cytomegalovirus infection
     Route: 065

REACTIONS (2)
  - Immune thrombocytopenia [Unknown]
  - Bicytopenia [Recovering/Resolving]
